FAERS Safety Report 5281970-9 (Version None)
Quarter: 2007Q1

REPORT INFORMATION
  Report Type: 
  Country: None (occurrence: None)
  Receive Date: 20070330
  Receipt Date: 20070322
  Transmission Date: 20070707
  Serious: Yes (Disabling, Other)
  Sender: FDA-Public Use
  Company Number: US-ELI_LILLY_AND_COMPANY-US200607002080

PATIENT
  Age: 60 Year
  Sex: Male

DRUGS (3)
  1. HUMALOG [Suspect]
     Indication: DIABETES MELLITUS
     Dosage: UNK, UNK
     Dates: start: 19980101
  2. CIALIS [Concomitant]
     Indication: ERECTILE DYSFUNCTION
     Dosage: UNK, UNK
     Dates: start: 20060609
  3. PROZAC [Concomitant]

REACTIONS (20)
  - BRAIN NEOPLASM [None]
  - CONVULSION [None]
  - CROHN'S DISEASE [None]
  - DIVERTICULITIS [None]
  - FALL [None]
  - HIP FRACTURE [None]
  - INTRACRANIAL ANEURYSM [None]
  - LOWER LIMB FRACTURE [None]
  - MOVEMENT DISORDER [None]
  - MUSCULAR WEAKNESS [None]
  - MUSCULOSKELETAL PAIN [None]
  - NERVE INJURY [None]
  - NERVOUS SYSTEM DISORDER [None]
  - ROAD TRAFFIC ACCIDENT [None]
  - ROTATOR CUFF SYNDROME [None]
  - SPINAL DISORDER [None]
  - SPINAL FRACTURE [None]
  - THERMAL BURN [None]
  - UPPER LIMB FRACTURE [None]
  - VISUAL ACUITY REDUCED [None]
